FAERS Safety Report 23459927 (Version 1)
Quarter: 2024Q1

REPORT INFORMATION
  Report Type: Spontaneous
  Country: US (occurrence: US)
  Receive Date: 20240131
  Receipt Date: 20240131
  Transmission Date: 20240410
  Serious: Yes (Life-Threatening, Hospitalization, Other)
  Sender: FDA-Public Use
  Company Number: US-EPICPHARMA-US-2024EPCLIT00220

PATIENT

DRUGS (6)
  1. LIDOCAINE HYDROCHLORIDE [Suspect]
     Active Substance: LIDOCAINE HYDROCHLORIDE
     Indication: Foetal exposure during pregnancy
     Route: 064
  2. FENTANYL [Suspect]
     Active Substance: FENTANYL\FENTANYL CITRATE
     Indication: Foetal exposure during pregnancy
     Route: 064
  3. PROPOFOL [Suspect]
     Active Substance: PROPOFOL
     Indication: Foetal exposure during pregnancy
     Route: 064
  4. REMIFENTANIL [Suspect]
     Active Substance: REMIFENTANIL
     Indication: Foetal exposure during pregnancy
     Route: 064
  5. NOREPINEPHRINE [Concomitant]
     Active Substance: NOREPINEPHRINE
     Indication: Foetal exposure during pregnancy
     Route: 064
  6. SUCCINYLCHOLINE CHLORIDE [Concomitant]
     Active Substance: SUCCINYLCHOLINE CHLORIDE
     Indication: Foetal exposure during pregnancy
     Route: 064

REACTIONS (2)
  - Cardio-respiratory distress [Unknown]
  - Foetal exposure during pregnancy [Unknown]
